FAERS Safety Report 4757370-4 (Version None)
Quarter: 2005Q3

REPORT INFORMATION
  Report Type: 
  Country: None (occurrence: None)
  Receive Date: 20050831
  Receipt Date: 20050824
  Transmission Date: 20060218
  Serious: Yes (Other)
  Sender: FDA-Public Use
  Company Number: DE-JNJFOC-20050604616

PATIENT
  Sex: Female
  Weight: 75 kg

DRUGS (1)
  1. DURAGESIC-100 [Suspect]
     Indication: PAIN
     Dosage: TAKEN FOR THE LAST 3 YEARS
     Route: 062

REACTIONS (2)
  - ANAEMIA [None]
  - GASTRIC ULCER [None]
